FAERS Safety Report 8499713-4 (Version None)
Quarter: 2012Q3

REPORT INFORMATION
  Report Type: 
  Country: None (occurrence: None)
  Receive Date: 20120710
  Receipt Date: 20120628
  Transmission Date: 20120928
  Serious: Yes (Hospitalization)
  Sender: FDA-Public Use
  Company Number: US-VERTEX PHARMACEUTICALS INC.-AE-2012-009989

PATIENT
  Sex: Female
  Weight: 63.56 kg

DRUGS (11)
  1. INCIVEK [Suspect]
     Indication: HEPATITIS C
     Route: 048
     Dates: start: 20120418
  2. SYNTHROID [Concomitant]
  3. COUMADIN [Concomitant]
     Indication: HEART VALVE REPLACEMENT
  4. DIGOXIN [Concomitant]
     Indication: ARRHYTHMIA
  5. RIBAVIRIN [Concomitant]
     Indication: HEPATITIS C
     Route: 048
     Dates: start: 20120418
  6. LOVENOX [Concomitant]
     Indication: THROMBOSIS PROPHYLAXIS
  7. PEGASYS [Concomitant]
     Indication: HEPATITIS C
     Route: 058
     Dates: start: 20120418
  8. FUROSEMIDE [Concomitant]
     Indication: HYPERTENSION
  9. POTASSIUM CHLORIDE [Concomitant]
  10. ANTIBIOTICS [Concomitant]
  11. RIBAVIRIN [Concomitant]

REACTIONS (6)
  - TACHYCARDIA [None]
  - CORONARY ARTERY DISEASE [None]
  - PNEUMONIA [None]
  - PLATELET COUNT DECREASED [None]
  - WHITE BLOOD CELL COUNT DECREASED [None]
  - ANAEMIA [None]
